FAERS Safety Report 8408151-1 (Version None)
Quarter: 2012Q2

REPORT INFORMATION
  Report Type: 
  Country: None (occurrence: None)
  Receive Date: 20120604
  Receipt Date: 20120529
  Transmission Date: 20120825
  Serious: Yes (Disabling)
  Sender: FDA-Public Use
  Company Number: PHHY2012DK046594

PATIENT
  Sex: Female
  Weight: 75 kg

DRUGS (6)
  1. LYRICA [Concomitant]
  2. ACETYLSALICYLIC ACID SRT [Suspect]
  3. NITROGLYCERIN [Concomitant]
  4. ATORVASTATIN CALCIUM [Interacting]
  5. BRILINTA [Interacting]
     Indication: THROMBOSIS PROPHYLAXIS
     Dosage: 90 MG, BID
     Route: 048
     Dates: start: 20120319
  6. BENDROFLUMETHIAZIDE W/POTASSIUM CHLORIDE [Concomitant]
     Indication: OEDEMA

REACTIONS (5)
  - DEMENTIA [None]
  - DIZZINESS [None]
  - HAEMATOMA [None]
  - DRUG INTERACTION [None]
  - OEDEMA [None]
